FAERS Safety Report 21539998 (Version 6)
Quarter: 2022Q4

REPORT INFORMATION
  Report Type: Report from Study
  Country: NL (occurrence: None)
  Receive Date: 20221102
  Receipt Date: 20221213
  Transmission Date: 20230113
  Serious: Yes (Hospitalization)
  Sender: FDA-Public Use
  Company Number: NL-ROCHE-3193064

PATIENT
  Age: 65 Year
  Sex: Female
  Weight: 77.5 kg

DRUGS (6)
  1. INVESTIGATIONAL PRODUCT [Suspect]
     Active Substance: INVESTIGATIONAL PRODUCT
     Indication: Metastatic malignant melanoma
     Dosage: MOST RECENT DOSE OF STUDY DRUG PRIOR TO AE, SAE 29-SEP-2022 3:07 PM TO 5:14 PM, ?START DATE OF MOST
     Route: 042
     Dates: start: 20220929
  2. ATEZOLIZUMAB [Suspect]
     Active Substance: ATEZOLIZUMAB
     Indication: Metastatic malignant melanoma
     Dosage: MOST RECENT DOSE OF STUDY DRUG PRIOR TO AE, SAE, 29-SEP-2022 11:55 AM TO 1:04 PM, 1200 MG.?MOST RECE
     Route: 041
     Dates: start: 20220929
  3. METOCLOPRAMIDE [Concomitant]
     Active Substance: METOCLOPRAMIDE
     Indication: Nausea
     Route: 048
     Dates: start: 20220929, end: 20221004
  4. LEVOTHYROXINE [Concomitant]
     Active Substance: LEVOTHYROXINE
     Route: 048
     Dates: start: 20220722
  5. CLEMASTINE [Concomitant]
     Active Substance: CLEMASTINE
     Indication: Premedication
     Route: 048
     Dates: start: 20221003
  6. FUROSEMIDE [Concomitant]
     Active Substance: FUROSEMIDE
     Indication: Dyspnoea
     Route: 048
     Dates: start: 20221007, end: 20221010

REACTIONS (1)
  - Cytokine release syndrome [Recovered/Resolved]

NARRATIVE: CASE EVENT DATE: 20220929
